FAERS Safety Report 15023472 (Version 1)
Quarter: 2018Q2

REPORT INFORMATION
  Report Type: Spontaneous
  Country: US (occurrence: US)
  Receive Date: 20180525
  Receipt Date: 20180525
  Transmission Date: 20180711
  Serious: No
  Sender: FDA-Public Use
  Company Number: None

PATIENT
  Age: 69 Year
  Sex: Female

DRUGS (19)
  1. INSULIN [Concomitant]
     Active Substance: INSULIN NOS
  2. LEVOTHYROXIN [Concomitant]
     Active Substance: LEVOTHYROXINE
  3. NORCO [Concomitant]
     Active Substance: ACETAMINOPHEN\HYDROCODONE BITARTRATE
  4. PROBIOTIC [Concomitant]
     Active Substance: PROBIOTICS NOS
  5. URSODIOL. [Concomitant]
     Active Substance: URSODIOL
  6. CALTRATE WITH VITAMIN D [Concomitant]
     Active Substance: CALCIUM CARBONATE\CHOLECALCIFEROL
  7. RELION [Concomitant]
  8. WOMENS MULT [Concomitant]
  9. VITAMIN D3 [Concomitant]
     Active Substance: CHOLECALCIFEROL
  10. HUMALOG [Concomitant]
     Active Substance: INSULIN LISPRO
  11. OCALIVA [Suspect]
     Active Substance: OBETICHOLIC ACID
     Indication: PRIMARY BILIARY CHOLANGITIS
     Route: 048
     Dates: start: 20170515
  12. AMITRIPTYLIN [Concomitant]
     Active Substance: AMITRIPTYLINE
  13. ATIVAN [Concomitant]
     Active Substance: LORAZEPAM
  14. OMEPRAZOLE. [Concomitant]
     Active Substance: OMEPRAZOLE
  15. ALDACTONE [Concomitant]
     Active Substance: SPIRONOLACTONE
  16. FLONASE [Concomitant]
     Active Substance: FLUTICASONE PROPIONATE
  17. LANTUS [Concomitant]
     Active Substance: INSULIN GLARGINE
  18. IRON [Concomitant]
     Active Substance: IRON
  19. VENLAFAXINE [Concomitant]
     Active Substance: VENLAFAXINE HYDROCHLORIDE

REACTIONS (2)
  - Dizziness [None]
  - Nausea [None]

NARRATIVE: CASE EVENT DATE: 201804
